FAERS Safety Report 11702339 (Version 2)
Quarter: 2015Q4

REPORT INFORMATION
  Report Type: Report from Study
  Country: AU (occurrence: AU)
  Receive Date: 20151105
  Receipt Date: 20151117
  Transmission Date: 20160304
  Serious: Yes (Hospitalization)
  Sender: FDA-Public Use
  Company Number: AU-GILEAD-2015-0180275

PATIENT
  Age: 53 Year
  Sex: Female
  Weight: 75.2 kg

DRUGS (19)
  1. NAPROSYN [Concomitant]
     Active Substance: NAPROXEN
     Route: 048
     Dates: start: 20151015
  2. VALDOXAN [Concomitant]
     Active Substance: AGOMELATINE
     Route: 048
     Dates: start: 2015
  3. PANADEINE FORTE [Concomitant]
     Active Substance: ACETAMINOPHEN\CODEINE PHOSPHATE
     Route: 048
     Dates: start: 20150925
  4. RITUXIMAB [Suspect]
     Active Substance: RITUXIMAB
     Dosage: 375 MG, Q1WK
     Route: 042
     Dates: start: 20151015, end: 20151015
  5. HYDROCORTISONE. [Concomitant]
     Active Substance: HYDROCORTISONE
     Route: 042
     Dates: start: 20150917
  6. PANADOL                            /00020001/ [Concomitant]
     Route: 048
     Dates: start: 201510
  7. IDELALISIB [Suspect]
     Active Substance: IDELALISIB
     Indication: CHRONIC LYMPHOCYTIC LEUKAEMIA
     Dosage: 150 MG, BID
     Route: 048
     Dates: start: 20150917
  8. RITUXIMAB [Suspect]
     Active Substance: RITUXIMAB
     Indication: CHRONIC LYMPHOCYTIC LEUKAEMIA
     Dosage: 640 MG, Q1WK
     Route: 042
     Dates: start: 20150917, end: 20150917
  9. RITUXIMAB [Suspect]
     Active Substance: RITUXIMAB
     Dosage: 375 MG, Q1WK
     Route: 042
     Dates: start: 20150924, end: 20150924
  10. RITUXIMAB [Suspect]
     Active Substance: RITUXIMAB
     Dosage: 375 MG, Q1WK
     Route: 042
     Dates: start: 20151001, end: 20151001
  11. CITALOPRAM [Concomitant]
     Active Substance: CITALOPRAM HYDROBROMIDE
     Route: 048
     Dates: start: 2009
  12. KEFLEX [Concomitant]
     Active Substance: CEPHALEXIN
     Route: 048
     Dates: start: 20151002
  13. PHENERGAN [Concomitant]
     Active Substance: PROMETHAZINE HYDROCHLORIDE
     Route: 042
     Dates: start: 20150917
  14. LAMICTAL [Concomitant]
     Active Substance: LAMOTRIGINE
     Route: 048
     Dates: start: 2014
  15. TOPIRAMATE. [Concomitant]
     Active Substance: TOPIRAMATE
     Route: 048
     Dates: start: 2014
  16. LITHIUM. [Concomitant]
     Active Substance: LITHIUM
     Route: 048
     Dates: start: 2011
  17. ZANTAC [Concomitant]
     Active Substance: RANITIDINE HYDROCHLORIDE
     Route: 048
     Dates: start: 20151015
  18. THYROXIN [Concomitant]
     Active Substance: LEVOTHYROXINE
     Route: 048
     Dates: start: 2013
  19. RITUXIMAB [Suspect]
     Active Substance: RITUXIMAB
     Dosage: UNK
     Route: 042

REACTIONS (6)
  - Diarrhoea [None]
  - Alanine aminotransferase increased [None]
  - Aspartate aminotransferase increased [None]
  - Liver function test abnormal [Not Recovered/Not Resolved]
  - Blood alkaline phosphatase increased [None]
  - Gamma-glutamyltransferase increased [None]

NARRATIVE: CASE EVENT DATE: 20151029
